FAERS Safety Report 24683519 (Version 1)
Quarter: 2024Q4

REPORT INFORMATION
  Report Type: Spontaneous
  Country: US (occurrence: US)
  Receive Date: 20241201
  Receipt Date: 20241201
  Transmission Date: 20250115
  Serious: Yes (Death, Hospitalization, Other)
  Sender: AMGEN
  Company Number: US-AMGEN-USASP2024232468

PATIENT
  Age: 11 Year
  Sex: Female

DRUGS (5)
  1. BEVACIZUMAB [Suspect]
     Active Substance: BEVACIZUMAB
     Indication: Cystoid macular oedema
     Dosage: UNK
     Route: 040
  2. BEVACIZUMAB [Suspect]
     Active Substance: BEVACIZUMAB
     Indication: Exudative retinopathy
  3. WHOLE BLOOD [Concomitant]
     Active Substance: WHOLE BLOOD
  4. IRON [Concomitant]
     Active Substance: IRON
  5. THALIDOMIDE [Concomitant]
     Active Substance: THALIDOMIDE

REACTIONS (17)
  - Death [Fatal]
  - Multiple organ dysfunction syndrome [Unknown]
  - Distributive shock [Unknown]
  - Spontaneous bacterial peritonitis [Unknown]
  - Enterocolitis [Unknown]
  - Escherichia peritonitis [Unknown]
  - Pneumonia staphylococcal [Unknown]
  - COVID-19 [Unknown]
  - Hypovolaemic shock [Unknown]
  - Gastrointestinal haemorrhage [Unknown]
  - Ischaemic stroke [Unknown]
  - Lactic acidosis [Unknown]
  - Respiratory acidosis [Unknown]
  - Haemodynamic instability [Unknown]
  - Gastritis [Unknown]
  - Drug effective for unapproved indication [Unknown]
  - Off label use [Unknown]
